FAERS Safety Report 8008160-0 (Version None)
Quarter: 2011Q4

REPORT INFORMATION
  Report Type: 
  Country: None (occurrence: None)
  Receive Date: 20111227
  Receipt Date: 20111222
  Transmission Date: 20120403
  Serious: Yes (Other)
  Sender: FDA-Public Use
  Company Number: GB-PFIZER INC-2011265166

PATIENT
  Age: 60 Year
  Sex: Male
  Weight: 126.6 kg

DRUGS (14)
  1. ATORVASTATIN CALCIUM [Suspect]
     Dosage: UNK
     Dates: start: 20110909
  2. CETIRIZINE [Concomitant]
     Dosage: UNK
     Dates: start: 20110527, end: 20110906
  3. CITALOPRAM [Concomitant]
     Dosage: UNK
     Dates: start: 20110809, end: 20110810
  4. DICLOFENAC SODIUM [Concomitant]
     Dosage: UNK
     Dates: start: 20110809
  5. OMEPRAZOLE [Concomitant]
     Dosage: UNK
     Dates: start: 20110809
  6. TADALAFIL [Concomitant]
     Dosage: UNK
     Dates: start: 20110809
  7. DOXAZOSIN [Concomitant]
     Dosage: UNK
     Dates: start: 20110809
  8. CETIRIZINE [Concomitant]
     Dosage: UNK
     Dates: start: 20111014
  9. EPIPEN [Concomitant]
     Dosage: UNK
     Dates: start: 20110428
  10. METFORMIN [Concomitant]
     Dosage: UNK
     Dates: start: 20110725, end: 20111004
  11. CO-DYDRAMOL [Concomitant]
     Dosage: UNK
     Dates: start: 20110809
  12. LERCANIDIPINE HYDROCHLORIDE [Concomitant]
     Dosage: UNK
     Dates: start: 20110809
  13. LOSARTAN [Concomitant]
     Dosage: UNK
     Dates: start: 20110809
  14. NYSTATIN [Concomitant]
     Dosage: UNK
     Dates: start: 20110809, end: 20110810

REACTIONS (1)
  - PRURITUS [None]
